FAERS Safety Report 8531576-0 (Version None)
Quarter: 2012Q3

REPORT INFORMATION
  Report Type: 
  Country: None (occurrence: None)
  Receive Date: 20120723
  Receipt Date: 20120717
  Transmission Date: 20120928
  Serious: Yes (Death, Hospitalization, Other)
  Sender: FDA-Public Use
  Company Number: NL-JNJFOC-20120614416

PATIENT
  Sex: Male

DRUGS (11)
  1. ZOLADEX [Concomitant]
     Route: 030
  2. PREDNISONE [Suspect]
     Indication: PRODUCT USED FOR UNKNOWN INDICATION
     Route: 065
  3. BISOPROLOL FUMARATE [Concomitant]
     Route: 048
  4. MOVICOLON [Concomitant]
     Route: 048
  5. OXYCONTIN [Concomitant]
     Route: 065
  6. ARCOXIA [Suspect]
     Indication: PRODUCT USED FOR UNKNOWN INDICATION
     Route: 048
  7. ZYTIGA [Suspect]
     Indication: PROSTATE CANCER
     Route: 048
     Dates: start: 20120423
  8. ASACOL [Concomitant]
     Route: 048
  9. ACETAMINOPHEN [Concomitant]
     Route: 065
  10. PANTOPRAZOLE [Concomitant]
     Route: 048
  11. LORAZEPAM [Concomitant]
     Route: 065

REACTIONS (2)
  - DEATH [None]
  - RENAL FAILURE [None]
